FAERS Safety Report 9291268 (Version 3)
Quarter: 2013Q3

REPORT INFORMATION
  Report Type: Report from Study
  Country: BR (occurrence: BR)
  Receive Date: 20130515
  Receipt Date: 20130806
  Transmission Date: 20140515
  Serious: Yes (Hospitalization, Other)
  Sender: FDA-Public Use
  Company Number: PHHY2013BR048309

PATIENT
  Sex: Female
  Weight: 54 kg

DRUGS (6)
  1. DIOVAN [Suspect]
     Dosage: UNK UKN, UNK
  2. DIOVAN [Suspect]
     Dosage: UNK UKN, UNK
  3. EXELON PATCH [Suspect]
     Dosage: 9.5 MG, UNK
     Route: 062
  4. DIOVAN TRIPLE [Suspect]
     Indication: BLOOD PRESSURE MANAGEMENT
     Dosage: 1 DF, (160 MG VALS/ 5 MG AMLO/ 12,5 MG HYDRO) DAILY
     Route: 048
  5. DIOVAN TRIPLE [Suspect]
     Dosage: 1 DF, (160 MG VALS/ 10 MG AMLO/ 12,5 MG HYDRO) WHEN HER BLOOD PRESSURE WAS ALTERED
     Route: 048
  6. DIOVAN TRIPLE [Suspect]
     Dosage: 1 DF, (160 MG VALS/ 5 MG AMLO/ 12,5 MG HYDRO) DAILY
     Route: 048

REACTIONS (7)
  - Transient ischaemic attack [Recovered/Resolved]
  - Panic disorder [Not Recovered/Not Resolved]
  - Feeling of despair [Not Recovered/Not Resolved]
  - Coronary artery occlusion [Unknown]
  - Blood pressure systolic increased [Recovering/Resolving]
  - Blood glucose abnormal [Unknown]
  - Memory impairment [Not Recovered/Not Resolved]
